FAERS Safety Report 7126550-5 (Version None)
Quarter: 2010Q4

REPORT INFORMATION
  Report Type: 
  Country: None (occurrence: None)
  Receive Date: 20101129
  Receipt Date: 20101125
  Transmission Date: 20110411
  Serious: Yes (Other)
  Sender: FDA-Public Use
  Company Number: JP-PFIZER INC-2010157968

PATIENT
  Age: 97 Year
  Sex: Male

DRUGS (2)
  1. ALDACTONE [Suspect]
     Dosage: 25 MG, UNK
     Route: 048
  2. RISPERDAL [Suspect]
     Route: 048

REACTIONS (1)
  - HYPOGLYCAEMIA [None]
